FAERS Safety Report 6752001-6 (Version None)
Quarter: 2010Q2

REPORT INFORMATION
  Report Type: 
  Country: None (occurrence: None)
  Receive Date: 20100602
  Receipt Date: 20100525
  Transmission Date: 20101027
  Serious: Yes (Hospitalization)
  Sender: FDA-Public Use
  Company Number: DE-AMGEN-QUU410388

PATIENT
  Sex: Female
  Weight: 87 kg

DRUGS (5)
  1. VECTIBIX [Suspect]
     Indication: COLORECTAL CANCER
     Route: 042
     Dates: start: 20100308, end: 20100322
  2. OXALIPLATIN [Concomitant]
     Dates: start: 20100308, end: 20100322
  3. FLUOROURACIL [Concomitant]
     Dates: start: 20100308, end: 20100322
  4. UNSPECIFIED MEDICATION [Concomitant]
     Dates: start: 20100308, end: 20100322
  5. KYTRIL [Concomitant]
     Dates: start: 20100308, end: 20100322

REACTIONS (6)
  - BLISTER [None]
  - BURNING SENSATION [None]
  - ERYTHEMA [None]
  - ESCHAR [None]
  - PHOTOSENSITIVITY REACTION [None]
  - SKIN BURNING SENSATION [None]
